FAERS Safety Report 8081208-3 (Version None)
Quarter: 2012Q1

REPORT INFORMATION
  Report Type: 
  Country: None (occurrence: None)
  Receive Date: 20120130
  Receipt Date: 20120124
  Transmission Date: 20120608
  Serious: Yes (Hospitalization)
  Sender: FDA-Public Use
  Company Number: IT-BAYER-2012-001061

PATIENT
  Age: 64 Year
  Sex: Female

DRUGS (3)
  1. IRBESARTAN + HYDROCHLOROTHIAZIDE [Concomitant]
     Dosage: DAILY DOSE 162.5 MG
     Route: 048
  2. LEVOTHYROXINE SODIUM [Concomitant]
     Dosage: DAILY DOSE 50 ?G
     Route: 048
  3. ASPIRIN [Suspect]
     Indication: CAROTID ARTERY STENOSIS
     Dosage: 100 MG, QD
     Route: 048
     Dates: start: 20110201, end: 20111121

REACTIONS (2)
  - DIVERTICULITIS INTESTINAL HAEMORRHAGIC [None]
  - ANAEMIA [None]
